FAERS Safety Report 21266469 (Version 1)
Quarter: 2022Q3

REPORT INFORMATION
  Report Type: Report from Study
  Country: PA (occurrence: PA)
  Receive Date: 20220829
  Receipt Date: 20220829
  Transmission Date: 20221026
  Serious: Yes (Other)
  Sender: FDA-Public Use
  Company Number: PA-NOVARTISPH-NVSC2022PA160441

PATIENT
  Sex: Female

DRUGS (1)
  1. KISQALI [Suspect]
     Active Substance: RIBOCICLIB
     Indication: Breast cancer metastatic
     Dosage: 600 MG, QD (3 TABLETS)
     Route: 048
     Dates: start: 202205

REACTIONS (10)
  - Metastases to pelvis [Unknown]
  - Drug hypersensitivity [Unknown]
  - Pruritus [Recovering/Resolving]
  - Pigmentation disorder [Unknown]
  - Hyperglycaemia [Unknown]
  - Hypertension [Unknown]
  - Lipids increased [Unknown]
  - Discomfort [Unknown]
  - Constipation [Unknown]
  - Tumour marker decreased [Recovering/Resolving]
